FAERS Safety Report 15050340 (Version 1)
Quarter: 2018Q2

REPORT INFORMATION
  Report Type: Report from Study
  Country: US (occurrence: US)
  Receive Date: 20180622
  Receipt Date: 20180622
  Transmission Date: 20180711
  Serious: Yes (Hospitalization, Other)
  Sender: FDA-Public Use
  Company Number: US-PFIZER INC-2018190807

PATIENT
  Age: 67 Year
  Sex: Female

DRUGS (1)
  1. SUTENT [Suspect]
     Active Substance: SUNITINIB MALATE
     Indication: RENAL CELL CARCINOMA
     Dosage: 50 MG, CYCLIC (2 WEEKS ON, 1 WEEK OFF/DAILY)
     Route: 048
     Dates: start: 20180427, end: 20180607

REACTIONS (14)
  - Thrombocytopenia [Unknown]
  - Pyrexia [Unknown]
  - Asthenia [Unknown]
  - Abdominal pain [Recovering/Resolving]
  - Bleeding time prolonged [Recovering/Resolving]
  - Malaise [Unknown]
  - Anal incontinence [Unknown]
  - Diarrhoea [Unknown]
  - Febrile convulsion [Unknown]
  - Limb injury [Unknown]
  - Urinary tract infection [Unknown]
  - Postoperative wound infection [Unknown]
  - Contusion [Unknown]
  - Confusional state [Recovering/Resolving]

NARRATIVE: CASE EVENT DATE: 2018
